FAERS Safety Report 10296488 (Version 1)
Quarter: 2014Q3

REPORT INFORMATION
  Report Type: Spontaneous
  Country: US (occurrence: None)
  Receive Date: 20140708
  Receipt Date: 20140708
  Transmission Date: 20150326
  Serious: Yes (Disabling)
  Sender: FDA-Public Use
  Company Number: None

PATIENT
  Sex: Female
  Weight: 57.15 kg

DRUGS (11)
  1. LOSARTAN [Concomitant]
     Active Substance: LOSARTAN
  2. OUETIAPINE [Concomitant]
  3. INVEGA [Concomitant]
     Active Substance: PALIPERIDONE
  4. BABY ASPIRIN [Concomitant]
     Active Substance: ASPIRIN
  5. VIT B [Concomitant]
     Active Substance: VITAMINS
  6. CARBAMA ZEPEPINE [Concomitant]
  7. LOREGEPAN [Concomitant]
  8. ATORVASTATIO [Concomitant]
  9. LITHIUM CARBONATE. [Suspect]
     Active Substance: LITHIUM CARBONATE
     Indication: BIPOLAR DISORDER
     Dosage: 450 MG AT BEDTIME, 1 PILL DIDN^T DOSAGES, AT BEDTIME, 1ST BY MOUTH LIQUID IN THE 80^, NOW PILL
     Route: 048
     Dates: start: 1980, end: 201406
  10. STOOL SOFTNER [Concomitant]
  11. AMLODIPEEN [Concomitant]

REACTIONS (2)
  - Death of relative [None]
  - Musculoskeletal stiffness [None]
